FAERS Safety Report 19821011 (Version 1)
Quarter: 2021Q3

REPORT INFORMATION
  Report Type: Spontaneous
  Country: US (occurrence: US)
  Receive Date: 20210913
  Receipt Date: 20210913
  Transmission Date: 20211014
  Serious: Yes (Other)
  Sender: FDA-Public Use
  Company Number: US-PFIZER INC-2021270491

PATIENT
  Age: 86 Year
  Sex: Female
  Weight: 38.56 kg

DRUGS (1)
  1. CHANTIX [Suspect]
     Active Substance: VARENICLINE TARTRATE
     Indication: SMOKING CESSATION THERAPY
     Dosage: UNK, TWICE A DAY (TAKES ONE IN THE MORNING AND ONE AT NIGHT)
     Route: 048
     Dates: start: 20210302

REACTIONS (2)
  - Insomnia [Unknown]
  - Disorientation [Unknown]

NARRATIVE: CASE EVENT DATE: 202103
